FAERS Safety Report 10423442 (Version 1)
Quarter: 2014Q3

REPORT INFORMATION
  Report Type: Spontaneous
  Country: US (occurrence: None)
  Receive Date: 20140730
  Receipt Date: 20140730
  Transmission Date: 20150326
  Serious: No
  Sender: FDA-Public Use
  Company Number: PHEH2014US007087

PATIENT
  Age: 57 Year
  Sex: Female

DRUGS (5)
  1. ASMANEX [Concomitant]
     Active Substance: MOMETASONE FUROATE
  2. DIOVAN [Concomitant]
     Active Substance: VALSARTAN
  3. ARCAPTA NEOHALER [Suspect]
     Active Substance: INDACATEROL MALEATE
  4. SPIRIVA [Concomitant]
     Active Substance: TIOTROPIUM BROMIDE MONOHYDRATE
  5. MULTIVITAMIN (ASCORBIC ACID, CALCIUM PANTOTHENATE, ERGOCALCIFEROL, NICONTINAMIDE, PYRIDOXINE HYDROCHLORIDE, RETINOL, RIBOFLAVIN, THIAMINE HYDROCHLORIDE) [Concomitant]

REACTIONS (1)
  - Malaise [None]
